FAERS Safety Report 25017751 (Version 1)
Quarter: 2025Q1

REPORT INFORMATION
  Report Type: Spontaneous
  Country: US (occurrence: None)
  Receive Date: 20250226
  Receipt Date: 20250226
  Transmission Date: 20250409
  Serious: Yes (Death)
  Sender: FDA-CTU
  Company Number: None

PATIENT
  Age: 4 Year
  Sex: Female

DRUGS (2)
  1. EPIDIOLEX [Suspect]
     Active Substance: CANNABIDIOL
     Indication: Epilepsy
     Dosage: FREQUENCY : TWICE A DAY;?OTHER ROUTE : GASTRIC TUBE;?
     Route: 050
     Dates: start: 20220428
  2. PULMOZYME [Suspect]
     Active Substance: DORNASE ALFA
     Indication: Respiration abnormal
     Dosage: FREQUENCY : TWICE A DAY;?
     Route: 055
     Dates: start: 20211217

REACTIONS (7)
  - Diarrhoea [None]
  - Gastrointestinal disorder [None]
  - Hypokalaemia [None]
  - Norovirus test positive [None]
  - Clostridium test positive [None]
  - Coagulopathy [None]
  - Thrombocytopenia [None]

NARRATIVE: CASE EVENT DATE: 20250122
